FAERS Safety Report 23275513 (Version 1)
Quarter: 2023Q4

REPORT INFORMATION
  Report Type: Spontaneous
  Country: KR (occurrence: KR)
  Receive Date: 20231208
  Receipt Date: 20231208
  Transmission Date: 20240109
  Serious: Yes (Death, Other)
  Sender: FDA-Public Use
  Company Number: KR-UCBSA-2023057765

PATIENT
  Age: 61 Year
  Sex: Female

DRUGS (3)
  1. LACOSAMIDE [Suspect]
     Active Substance: LACOSAMIDE
     Indication: Partial seizures
     Dosage: 200 MILLIGRAM/DAY
  2. LEVETIRACETAM [Suspect]
     Active Substance: LEVETIRACETAM
     Indication: Seizure
     Dosage: UNK
  3. LEVETIRACETAM [Suspect]
     Active Substance: LEVETIRACETAM
     Dosage: 1000 MILLIGRAM/DAY

REACTIONS (4)
  - Toxic epidermal necrolysis [Fatal]
  - Sepsis [Fatal]
  - Partial seizures [Recovered/Resolved]
  - Treatment noncompliance [Unknown]
